FAERS Safety Report 8871647 (Version 1)
Quarter: 2012Q4

REPORT INFORMATION
  Report Type: 
  Country: US (occurrence: US)
  Receive Date: 20121023
  Receipt Date: 20121023
  Transmission Date: 20130627
  Serious: Yes (Hospitalization, Other)
  Sender: FDA-Public Use
  Company Number: US-ASTELLAS-2012US008065

PATIENT
  Age: 63 None
  Sex: Female
  Weight: 54 kg

DRUGS (10)
  1. PROGRAF [Suspect]
     Indication: RENAL TRANSPLANT
     Dosage: 4 mg, bid
     Route: 048
     Dates: start: 20000531
  2. CELLCEPT                           /01275102/ [Concomitant]
     Indication: IMMUNOSUPPRESSION
     Dosage: 500 mg, bid
     Route: 048
     Dates: start: 20000531
  3. PREDNISONE [Concomitant]
     Indication: IMMUNOSUPPRESSION
     Dosage: 5 mg, UID/QD
     Route: 048
     Dates: start: 20000531
  4. PREDNISONE [Concomitant]
     Dosage: 2.5 mg, UID/QD
     Route: 048
     Dates: start: 20000531
  5. POTASSIUM GLUCONATE [Concomitant]
     Indication: BLOOD POTASSIUM
     Dosage: UNK
     Route: 048
  6. LISINOPRIL [Concomitant]
     Indication: HYPERTENSION
     Dosage: 20 mg, UID/QD
     Route: 048
     Dates: start: 20000531
  7. AMLODIPINE [Concomitant]
     Indication: HYPERTENSION
     Dosage: 10 mg, UID/QD
     Route: 048
     Dates: start: 20000531
  8. MAGNESIUM OXIDE [Concomitant]
     Indication: BLOOD MAGNESIUM
     Dosage: 400 mg, UID/QD
     Route: 048
     Dates: start: 2005
  9. VITAMIN D3 [Concomitant]
     Indication: VITAMIN D
     Dosage: 2000 IU, UID/QD
     Route: 048
     Dates: start: 2010
  10. FOSAMAX [Concomitant]
     Indication: PRODUCT USED FOR UNKNOWN INDICATION
     Dosage: 70 mg, Weekly
     Route: 048

REACTIONS (8)
  - Drug ineffective [Unknown]
  - Kidney transplant rejection [Unknown]
  - Nasopharyngitis [Unknown]
  - Blood potassium decreased [Unknown]
  - Blood sodium decreased [Unknown]
  - Asthenia [Unknown]
  - Vomiting [Unknown]
  - Osteoporosis [Unknown]
